FAERS Safety Report 6135630-2 (Version None)
Quarter: 2009Q1

REPORT INFORMATION
  Report Type: 
  Country: None (occurrence: None)
  Receive Date: 20090327
  Receipt Date: 20080129
  Transmission Date: 20090719
  Serious: No
  Sender: FDA-Public Use
  Company Number: US-ASTRAZENECA-2008UW02023

PATIENT
  Sex: Female

DRUGS (3)
  1. ZESTRIL [Suspect]
     Route: 048
  2. ZESTRIL [Suspect]
     Route: 048
  3. ZESTRIL [Suspect]
     Route: 048

REACTIONS (4)
  - BLOOD PRESSURE INCREASED [None]
  - DIZZINESS [None]
  - FEELING ABNORMAL [None]
  - NIGHTMARE [None]
